FAERS Safety Report 9304014 (Version 1)
Quarter: 2013Q2

REPORT INFORMATION
  Report Type: Spontaneous
  Country: AU (occurrence: AU)
  Receive Date: 20130522
  Receipt Date: 20130522
  Transmission Date: 20140414
  Serious: Yes (Death, Other)
  Sender: FDA-Public Use
  Company Number: PHHY2013AU050795

PATIENT
  Sex: Male

DRUGS (9)
  1. TACROLIMUS [Suspect]
  2. SIROLIMUS [Suspect]
  3. AZATHIOPRINE [Concomitant]
  4. PREDNISOLONE [Concomitant]
  5. ANTITHYMOCYTE IMMUNOGLOBULIN (HORSE) [Concomitant]
  6. ANTITHYMOCYTE IMMUNOGLOBULIN (RABBIT) [Concomitant]
  7. IMMUNOGLOBULINS [Concomitant]
  8. CYCLOPHOSPHAMIDE [Concomitant]
     Route: 042
  9. CYCLOPHOSPHAMIDE [Concomitant]
     Dosage: UNK
     Route: 048
     Dates: start: 200208

REACTIONS (16)
  - Colitis ischaemic [Fatal]
  - Intestinal perforation [Fatal]
  - Haemolytic uraemic syndrome [Fatal]
  - Anaemia [Fatal]
  - Thrombotic microangiopathy [Fatal]
  - Thrombocytopenia [Fatal]
  - Haematuria [Fatal]
  - Renal failure [Fatal]
  - Weaning failure [Unknown]
  - Malaise [Unknown]
  - Obliterative bronchiolitis [Unknown]
  - Bronchitis [Unknown]
  - Respiratory failure [Unknown]
  - Respiratory distress [Unknown]
  - Lung transplant rejection [Unknown]
  - Confusional state [Unknown]
